FAERS Safety Report 14567009 (Version 1)
Quarter: 2018Q1

REPORT INFORMATION
  Report Type: Spontaneous
  Country: US (occurrence: US)
  Receive Date: 20180222
  Receipt Date: 20180222
  Transmission Date: 20180509
  Serious: Yes (Life-Threatening)
  Sender: FDA-Public Use
  Company Number: None

PATIENT
  Sex: Male
  Weight: 105.75 kg

DRUGS (17)
  1. TRULICITY [Suspect]
     Active Substance: DULAGLUTIDE
     Indication: DIABETES MELLITUS
     Dosage: ?          QUANTITY:2 INJECTION(S);OTHER FREQUENCY:WEEKLY;OTHER ROUTE:INJECTED IN THIGH?
     Dates: start: 20180210, end: 20180210
  2. TAMSULOSIN [Concomitant]
     Active Substance: TAMSULOSIN
  3. GAIA ADRENAL HEALTH [Concomitant]
  4. VITAMIN B12 [Concomitant]
     Active Substance: CYANOCOBALAMIN
  5. LISINOPRIL-HCTZ [Concomitant]
     Active Substance: HYDROCHLOROTHIAZIDE\LISINOPRIL
  6. OMEGA 3 [Concomitant]
     Active Substance: OMEGA-3 FATTY ACIDS
  7. ZYRTEC [Concomitant]
     Active Substance: CETIRIZINE HYDROCHLORIDE
  8. FOLIC ACID. [Concomitant]
     Active Substance: FOLIC ACID
  9. PHILLIPS PROBIOTIC [Concomitant]
  10. TESTOSTERONE. [Concomitant]
     Active Substance: TESTOSTERONE
  11. ATORVASTATIN [Concomitant]
     Active Substance: ATORVASTATIN
  12. GLIMEPIRIDE. [Concomitant]
     Active Substance: GLIMEPIRIDE
  13. AMLODIPINE [Concomitant]
     Active Substance: AMLODIPINE BESYLATE
  14. DHEA [Concomitant]
     Active Substance: PRASTERONE
  15. COQ10 [Concomitant]
     Active Substance: UBIDECARENONE
  16. PROGNENOLONE [Concomitant]
  17. VITAMIN D3 [Concomitant]
     Active Substance: CHOLECALCIFEROL

REACTIONS (6)
  - Diarrhoea [None]
  - Retching [None]
  - Feeding disorder [None]
  - Nausea [None]
  - Abdominal distension [None]
  - Eructation [None]

NARRATIVE: CASE EVENT DATE: 20180214
